FAERS Safety Report 5684829-8 (Version None)
Quarter: 2008Q1

REPORT INFORMATION
  Report Type: 
  Country: None (occurrence: None)
  Receive Date: 20080328
  Receipt Date: 20071105
  Transmission Date: 20080703
  Serious: Yes (Life-Threatening, Hospitalization)
  Sender: FDA-Public Use
  Company Number: US-BRISTOL-MYERS SQUIBB COMPANY-13947395

PATIENT
  Age: 72 Year
  Sex: Male

DRUGS (13)
  1. ERBITUX [Suspect]
     Indication: COLORECTAL CANCER
     Dosage: NDC#FOR 100MG VIAL IS 66733091823, LOT #07C00243B,EXP.7/2010; FOR 200MG CAPTURED IN PRODUCT SCREEN.
     Route: 042
     Dates: start: 20071017, end: 20071017
  2. AVASTIN [Suspect]
     Dates: start: 20061011
  3. BENADRYL [Concomitant]
     Route: 042
     Dates: start: 20071017, end: 20071017
  4. TOPROL-XL [Concomitant]
     Indication: HYPERTENSION
  5. COMPAZINE [Concomitant]
  6. NEXIUM [Concomitant]
  7. NEURONTIN [Concomitant]
  8. CENTRUM SILVER [Concomitant]
  9. FOLIC ACID [Concomitant]
  10. OMEPRAZOLE [Concomitant]
     Indication: GASTROOESOPHAGEAL REFLUX DISEASE
  11. VEPESID [Concomitant]
     Indication: PREMEDICATION
  12. DECADRON [Concomitant]
     Indication: PREMEDICATION
  13. ALOXI [Concomitant]
     Indication: PREMEDICATION

REACTIONS (1)
  - HYPERSENSITIVITY [None]
